FAERS Safety Report 8113566-5 (Version None)
Quarter: 2011Q4

REPORT INFORMATION
  Report Type: 
  Country: None (occurrence: None)
  Receive Date: 20111227
  Receipt Date: 20111115
  Transmission Date: 20120403
  Serious: Yes (Other)
  Sender: FDA-Public Use
  Company Number: PHEH2011US01497

PATIENT
  Age: 28 Year
  Sex: Female

DRUGS (1)
  1. GILENYA [Suspect]
     Indication: RELAPSING-REMITTING MULTIPLE SCLEROSIS
     Dosage: 0.5 MG, QD, ORAL
     Route: 048
     Dates: start: 20110803

REACTIONS (12)
  - FATIGUE [None]
  - MIGRAINE [None]
  - DYSPNOEA [None]
  - BURNING SENSATION [None]
  - PHARYNGITIS STREPTOCOCCAL [None]
  - LUNG INFECTION [None]
  - VISION BLURRED [None]
  - PARAESTHESIA [None]
  - PYREXIA [None]
  - FALL [None]
  - INFLUENZA LIKE ILLNESS [None]
  - PAIN IN EXTREMITY [None]
